FAERS Safety Report 9580750 (Version 2)
Quarter: 2013Q4

REPORT INFORMATION
  Report Type: Spontaneous
  Country: IT (occurrence: IT)
  Receive Date: 20131002
  Receipt Date: 20131018
  Transmission Date: 20140711
  Serious: Yes (Life-Threatening)
  Sender: FDA-Public Use
  Company Number: IT-GE HEALTHCARE MEDICAL DIAGNOSTICS-VISP-PR-1309S-0837

PATIENT
  Age: 53 Year
  Sex: Male

DRUGS (4)
  1. VISIPAQUE [Suspect]
     Indication: ARTERIOGRAM CORONARY
     Route: 042
     Dates: start: 20121108, end: 20121108
  2. VISIPAQUE [Suspect]
     Indication: DIAGNOSTIC PROCEDURE
  3. EFIENT [Suspect]
     Indication: ACUTE CORONARY SYNDROME
     Route: 048
     Dates: start: 20121108, end: 20121108
  4. ANGIOX [Suspect]
     Indication: ACUTE CORONARY SYNDROME
     Dates: start: 20121108, end: 20121108

REACTIONS (8)
  - Nasal obstruction [Recovered/Resolved]
  - Rash [Recovered/Resolved]
  - Eyelid oedema [Recovered/Resolved]
  - Oedema mouth [Recovered/Resolved]
  - Nasal oedema [Recovered/Resolved]
  - Flushing [Recovered/Resolved]
  - Dyspnoea [Recovered/Resolved]
  - Vomiting [Recovered/Resolved]
